FAERS Safety Report 4577744-4 (Version None)
Quarter: 2005Q1

REPORT INFORMATION
  Report Type: 
  Country: None (occurrence: None)
  Receive Date: 20050203
  Receipt Date: 20050119
  Transmission Date: 20050727
  Serious: Yes (Death, Life-Threatening, Hospitalization)
  Sender: FDA-Public Use
  Company Number: BEWYE354319JAN05

PATIENT
  Age: 62 Year
  Sex: Male

DRUGS (2)
  1. REFACTO [Suspect]
     Indication: HAEMOPHILIA A WITH ANTI FACTOR VIII
     Dosage: INTRAVENOUS
     Route: 042
     Dates: start: 20041201, end: 20050115
  2. REFACTO [Suspect]
     Indication: HAEMOPHILIA A WITH ANTI FACTOR VIII
     Dosage: INTRAVENOUS
     Route: 042
     Dates: start: 20050115

REACTIONS (8)
  - CARDIAC DISORDER [None]
  - FACTOR VIII INHIBITION [None]
  - FALL [None]
  - HAEMORRHAGE [None]
  - MULTI-ORGAN FAILURE [None]
  - OBSTRUCTION [None]
  - RENAL DISORDER [None]
  - RESPIRATORY DISORDER [None]
